FAERS Safety Report 8900999 (Version 1)
Quarter: 2012Q4

REPORT INFORMATION
  Report Type: 
  Country: US (occurrence: US)
  Receive Date: 20121109
  Receipt Date: 20121109
  Transmission Date: 20130627
  Serious: Yes (Hospitalization)
  Sender: FDA-Public Use
  Company Number: US-US-EMD SERONO, INC.-7172180

PATIENT
  Sex: Female

DRUGS (2)
  1. REBIF [Suspect]
     Indication: PRODUCT USED FOR UNKNOWN INDICATION
     Route: 058
     Dates: start: 20101101
  2. SEASONAL ALLERY SHOT [Concomitant]
     Indication: SEASONAL ALLERGY

REACTIONS (4)
  - Platelet count decreased [Unknown]
  - Lymphadenopathy [Unknown]
  - Cough [Unknown]
  - Influenza like illness [Unknown]
